FAERS Safety Report 4353625-6 (Version None)
Quarter: 2004Q2

REPORT INFORMATION
  Report Type: 
  Country: None (occurrence: None)
  Receive Date: 20040430
  Receipt Date: 20040421
  Transmission Date: 20050107
  Serious: Yes (Hospitalization)
  Sender: FDA-Public Use
  Company Number: 206138

PATIENT
  Age: 40 Year
  Sex: Female
  Weight: 150.1 kg

DRUGS (10)
  1. XOLAIR [Suspect]
     Indication: ASTHMA
     Dosage: 375 MG, Q2W, SUBCUTANEOUS
     Route: 058
     Dates: start: 20031010
  2. ALBUTEROL (ALBUTEROL, ALBUTEROL SULFATE) [Concomitant]
  3. SINGULAIR [Concomitant]
  4. ADVAIR DISKUS [Concomitant]
  5. LEVOXYL [Concomitant]
  6. ZOCOR [Concomitant]
  7. NOVOLOG (INSULIN HUMAN) [Concomitant]
  8. FLUOCORTOLONE (FLUOCORTOLONE) [Concomitant]
  9. GLUCOVANCE (GLYBURIDE METFORMIN) [Concomitant]
  10. ACTON (CORTICOTROPIN) [Concomitant]

REACTIONS (2)
  - BLOOD PRESSURE INCREASED [None]
  - WHEEZING [None]
